FAERS Safety Report 25630210 (Version 1)
Quarter: 2025Q3

REPORT INFORMATION
  Report Type: Spontaneous
  Country: US (occurrence: US)
  Receive Date: 20250801
  Receipt Date: 20250801
  Transmission Date: 20251021
  Serious: Yes (Life-Threatening, Hospitalization, Other)
  Sender: JUBILANT
  Company Number: US-JUBILANT CADISTA PHARMACEUTICALS-2025US000867

PATIENT

DRUGS (4)
  1. RISPERIDONE [Suspect]
     Active Substance: RISPERIDONE
     Indication: Product used for unknown indication
     Route: 065
  2. ETHYLENE GLYCOL [Suspect]
     Active Substance: ETHYLENE GLYCOL
     Indication: Product used for unknown indication
     Route: 065
  3. FOMEPIZOLE [Concomitant]
     Active Substance: FOMEPIZOLE
     Indication: Alcohol poisoning
     Route: 042
  4. FOMEPIZOLE [Concomitant]
     Active Substance: FOMEPIZOLE
     Dosage: 10 MG/KG, 2 TIMES PER DAY (FOR 4 DOSES)
     Route: 042

REACTIONS (6)
  - Electrocardiogram QT prolonged [Unknown]
  - Blood glucose increased [Unknown]
  - Sinus tachycardia [Not Recovered/Not Resolved]
  - Hypotension [Recovering/Resolving]
  - Intentional overdose [Recovered/Resolved]
  - Toxicity to various agents [Recovered/Resolved]
